FAERS Safety Report 8184345-8 (Version None)
Quarter: 2012Q1

REPORT INFORMATION
  Report Type: 
  Country: None (occurrence: None)
  Receive Date: 20120305
  Receipt Date: 20120221
  Transmission Date: 20120608
  Serious: Yes (Life-Threatening)
  Sender: FDA-Public Use
  Company Number: US-ELI_LILLY_AND_COMPANY-US201202006924

PATIENT
  Sex: Male

DRUGS (2)
  1. ALCOHOL [Concomitant]
  2. CYMBALTA [Suspect]
     Indication: DEPRESSION
     Dosage: 60 MG, QD
     Dates: start: 20100701

REACTIONS (2)
  - HEPATIC FAILURE [None]
  - OFF LABEL USE [None]
